FAERS Safety Report 13175604 (Version 2)
Quarter: 2018Q1

REPORT INFORMATION
  Report Type: Spontaneous
  Country: HR (occurrence: HR)
  Receive Date: 20170201
  Receipt Date: 20180131
  Transmission Date: 20180508
  Serious: Yes (Other)
  Sender: FDA-Public Use
  Company Number: HR-MYLANLABS-2017M1004545

PATIENT
  Age: 34 Year
  Sex: Female

DRUGS (8)
  1. FLUVOXAMINE [Suspect]
     Active Substance: FLUVOXAMINE
     Indication: ENCEPHALITIS AUTOIMMUNE
  2. OLANZAPINE. [Suspect]
     Active Substance: OLANZAPINE
     Indication: ENCEPHALITIS AUTOIMMUNE
  3. CLOZAPINE. [Suspect]
     Active Substance: CLOZAPINE
     Indication: ENCEPHALITIS AUTOIMMUNE
  4. HALOPERIDOL. [Suspect]
     Active Substance: HALOPERIDOL
     Indication: ENCEPHALITIS AUTOIMMUNE
  5. DIAZEPAM. [Suspect]
     Active Substance: DIAZEPAM
     Indication: ENCEPHALITIS AUTOIMMUNE
  6. FLURAZEPAM [Suspect]
     Active Substance: FLURAZEPAM\FLURAZEPAM HYDROCHLORIDE
     Indication: ENCEPHALITIS AUTOIMMUNE
  7. SULPIRIDE [Suspect]
     Active Substance: SULPIRIDE
     Indication: ENCEPHALITIS AUTOIMMUNE
  8. RISPERIDONE. [Suspect]
     Active Substance: RISPERIDONE
     Indication: ENCEPHALITIS AUTOIMMUNE

REACTIONS (11)
  - Aggression [Recovered/Resolved]
  - Dyskinesia [Recovered/Resolved]
  - Somnolence [Recovered/Resolved]
  - Anxiety [Recovered/Resolved]
  - Product use in unapproved indication [Unknown]
  - Paranoia [Recovered/Resolved]
  - Off label use [Unknown]
  - Stupor [Recovered/Resolved]
  - Confusional state [Recovered/Resolved]
  - Negativism [Recovered/Resolved]
  - Mutism [Recovered/Resolved]
